FAERS Safety Report 5134739-X (Version None)
Quarter: 2006Q4

REPORT INFORMATION
  Report Type: 
  Country: None (occurrence: None)
  Receive Date: 20061025
  Receipt Date: 20060628
  Transmission Date: 20070319
  Serious: Yes (Hospitalization)
  Sender: FDA-Public Use
  Company Number: DE-ROCHE-453187

PATIENT
  Age: 44 Year
  Sex: Male

DRUGS (3)
  1. PEGASYS [Suspect]
     Indication: HEPATITIS C
     Dosage: STRENGTH: 180 MCG.
     Route: 065
     Dates: start: 20060130, end: 20060531
  2. PEGASYS [Suspect]
     Dosage: STRENGTH: 135 MCG. DURATION OF BOTH THERAPIES REPORTED AS APPROXIMATELY 20 WEEKS.
     Route: 065
     Dates: start: 20060601, end: 20060609
  3. COPEGUS [Suspect]
     Indication: HEPATITIS C
     Route: 065
     Dates: start: 20060130, end: 20060609

REACTIONS (2)
  - LEWIS-SUMNER SYNDROME [None]
  - POLYNEUROPATHY [None]
